FAERS Safety Report 8233268-4 (Version None)
Quarter: 2012Q1

REPORT INFORMATION
  Report Type: 
  Country: None (occurrence: None)
  Receive Date: 20120326
  Receipt Date: 20120314
  Transmission Date: 20120608
  Serious: Yes (Hospitalization, Other)
  Sender: FDA-Public Use
  Company Number: ZA-BAYER-2011-056845

PATIENT
  Age: 40 Year
  Sex: Female

DRUGS (3)
  1. MIRENA [Suspect]
     Indication: CONTRACEPTION
     Dosage: 20 ?G/D, CONT
     Route: 015
     Dates: start: 20110519
  2. MIRENA [Suspect]
     Dosage: UNK
     Dates: end: 20080601
  3. PREMARIN [Concomitant]
     Indication: VAGINAL PROLAPSE
     Route: 067

REACTIONS (4)
  - PREGNANCY WITH CONTRACEPTIVE DEVICE [None]
  - NO ADVERSE EVENT [None]
  - PREMATURE LABOUR [None]
  - HEPATIC CYST INFECTION [None]
